FAERS Safety Report 5276296-3 (Version None)
Quarter: 2007Q1

REPORT INFORMATION
  Report Type: 
  Country: None (occurrence: None)
  Receive Date: 20070326
  Receipt Date: 20070314
  Transmission Date: 20070707
  Serious: Yes (Hospitalization)
  Sender: FDA-Public Use
  Company Number: JP-PFIZER INC-2007015779

PATIENT
  Sex: Male
  Weight: 70.6 kg

DRUGS (6)
  1. CABASER [Suspect]
     Indication: PARKINSON'S DISEASE
     Route: 048
     Dates: start: 20050422, end: 20070112
  2. MADOPAR [Concomitant]
     Indication: PARKINSON'S DISEASE
     Route: 048
  3. ARTANE [Concomitant]
     Indication: PARKINSON'S DISEASE
     Route: 048
  4. ETIZOLAM [Concomitant]
     Indication: MUSCULOSKELETAL STIFFNESS
     Route: 048
  5. ETIZOLAM [Concomitant]
     Indication: HEADACHE
  6. PRAMIPEXOLE DIHYDROCHLORIDE [Concomitant]
     Indication: PARKINSON'S DISEASE
     Route: 048
     Dates: start: 20070112, end: 20070214

REACTIONS (3)
  - PLEURAL EFFUSION [None]
  - PLEURISY [None]
  - PNEUMONIA [None]
